FAERS Safety Report 4982124-3 (Version None)
Quarter: 2006Q2

REPORT INFORMATION
  Report Type: 
  Country: None (occurrence: None)
  Receive Date: 20060425
  Receipt Date: 20051103
  Transmission Date: 20061013
  Serious: Yes (Hospitalization, Other)
  Sender: FDA-Public Use
  Company Number: US-MERCK-0511USA00598

PATIENT
  Age: 64 Year
  Sex: Female
  Weight: 68 kg

DRUGS (29)
  1. VIOXX [Suspect]
     Indication: ARTHRITIS
     Route: 048
     Dates: start: 20010401, end: 20010501
  2. VIOXX [Suspect]
     Route: 048
     Dates: start: 20011001, end: 20020831
  3. ALLEGRA [Concomitant]
     Route: 065
  4. ASPIRIN [Concomitant]
     Route: 065
  5. ATIVAN [Concomitant]
     Route: 065
  6. CALCIUM CARBONATE [Concomitant]
     Route: 065
  7. OS-CAL [Concomitant]
     Route: 065
  8. CELEXA [Concomitant]
     Route: 065
  9. CIPROFLOXACIN HCL [Concomitant]
     Route: 065
  10. CRANBERRY [Concomitant]
     Route: 065
  11. DESYREL [Concomitant]
     Route: 065
  12. EFFEXOR XR [Concomitant]
     Route: 065
  13. ACETAMINOPHEN AND HYDROCODONE BITARTRATE [Concomitant]
     Route: 065
  14. HYDROCORTISONE ACETATE [Concomitant]
     Route: 065
  15. LEVOXYL [Concomitant]
     Route: 065
  16. LORAZEPAM [Concomitant]
     Route: 065
  17. LOTENSIN [Concomitant]
     Route: 065
  18. METRONIDAZOLE [Concomitant]
     Route: 065
  19. MOBIC [Concomitant]
     Route: 065
  20. VITAMINS (UNSPECIFIED) [Concomitant]
     Route: 065
  21. PREMPRO [Concomitant]
     Route: 065
  22. PROTONIX [Concomitant]
     Route: 065
  23. PROZAC [Concomitant]
     Route: 065
  24. SYNTHROID [Concomitant]
     Route: 065
  25. TRAZODONE HYDROCHLORIDE [Concomitant]
     Route: 065
  26. ASCORBIC ACID [Concomitant]
     Route: 065
  27. ZYPREXA [Concomitant]
     Route: 065
  28. [COMPOSITION UNSPECIFIED] [Concomitant]
     Route: 065
  29. [COMPOSITION UNSPECIFIED] [Concomitant]
     Route: 065

REACTIONS (8)
  - BALANCE DISORDER [None]
  - CEREBROVASCULAR ACCIDENT [None]
  - CHOLECYSTITIS [None]
  - CHOLELITHIASIS [None]
  - FALL [None]
  - GASTROOESOPHAGEAL REFLUX DISEASE [None]
  - RIB FRACTURE [None]
  - SMALL INTESTINAL OBSTRUCTION [None]
